FAERS Safety Report 8424285-X (Version None)
Quarter: 2012Q2

REPORT INFORMATION
  Report Type: 
  Country: None (occurrence: None)
  Receive Date: 20120608
  Receipt Date: 20111117
  Transmission Date: 20120825
  Serious: No
  Sender: FDA-Public Use
  Company Number: US-ASTRAZENECA-2011SE70259

PATIENT

DRUGS (2)
  1. FORMOTEROL FUMARATE [Interacting]
     Route: 065
  2. PULMICORT [Suspect]
     Route: 055

REACTIONS (1)
  - DRUG INTERACTION [None]
